FAERS Safety Report 9232754 (Version 3)
Quarter: 2013Q2

REPORT INFORMATION
  Report Type: Spontaneous
  Country: US (occurrence: US)
  Receive Date: 20130416
  Receipt Date: 20130522
  Transmission Date: 20140414
  Serious: Yes (Other)
  Sender: FDA-Public Use
  Company Number: US-JNJFOC-20130404853

PATIENT
  Age: 40 Year
  Sex: Female

DRUGS (2)
  1. ZYTIGA [Suspect]
     Indication: OCCUPATIONAL EXPOSURE TO PRODUCT
     Route: 061
  2. PRENATAL VITAMINS [Concomitant]
     Route: 065

REACTIONS (3)
  - Premature delivery [Recovered/Resolved]
  - Exposure during pregnancy [Recovered/Resolved]
  - Accidental exposure to product [Recovered/Resolved]
